FAERS Safety Report 5281627-4 (Version None)
Quarter: 2007Q1

REPORT INFORMATION
  Report Type: 
  Country: None (occurrence: None)
  Receive Date: 20070326
  Receipt Date: 20070309
  Transmission Date: 20070707
  Serious: Yes (Hospitalization)
  Sender: FDA-Public Use
  Company Number: DSA_29633_2007

PATIENT
  Age: 24 Year
  Sex: Female

DRUGS (3)
  1. DILTIAZEM [Suspect]
     Dosage: 1800 MG ONCE PO
     Route: 048
  2. DISOPYRAMIDE [Suspect]
     Dosage: 3000 MG ONCE PO
     Route: 048
  3. KALLIDINOGENASE [Suspect]
     Dosage: 200 MG ONCE PO
     Route: 048

REACTIONS (8)
  - BLOOD POTASSIUM DECREASED [None]
  - BLOOD PRESSURE DECREASED [None]
  - DEPRESSED LEVEL OF CONSCIOUSNESS [None]
  - ELECTROCARDIOGRAM QRS COMPLEX PROLONGED [None]
  - ELECTROCARDIOGRAM QT CORRECTED INTERVAL PROLONGED [None]
  - HEART RATE DECREASED [None]
  - MULTIPLE DRUG OVERDOSE [None]
  - NODAL RHYTHM [None]
